FAERS Safety Report 5984627-1 (Version None)
Quarter: 2008Q4

REPORT INFORMATION
  Report Type: 
  Country: None (occurrence: None)
  Receive Date: 20081208
  Receipt Date: 20080825
  Transmission Date: 20090506
  Serious: No
  Sender: FDA-Public Use
  Company Number: US-AMGEN-KDL300998

PATIENT
  Sex: Female

DRUGS (6)
  1. ENBREL [Suspect]
     Indication: PSORIATIC ARTHROPATHY
     Route: 058
     Dates: start: 20050101
  2. METHOTREXATE [Concomitant]
     Route: 048
     Dates: start: 20050101
  3. WELLBUTRIN [Concomitant]
     Dates: start: 20060101
  4. ZOCOR [Concomitant]
     Dates: start: 20030101
  5. TRAZODONE HCL [Concomitant]
     Dates: start: 19980101
  6. ZOMIG [Concomitant]
     Dates: start: 20040101

REACTIONS (4)
  - ARTHRALGIA [None]
  - JOINT RANGE OF MOTION DECREASED [None]
  - JOINT SWELLING [None]
  - JOINT WARMTH [None]
